FAERS Safety Report 8007543-2 (Version None)
Quarter: 2011Q4

REPORT INFORMATION
  Report Type: 
  Country: None (occurrence: None)
  Receive Date: 20111227
  Receipt Date: 20111216
  Transmission Date: 20120403
  Serious: Yes (Other)
  Sender: FDA-Public Use
  Company Number: US-BAYER-2011-041012

PATIENT
  Age: 32 Year
  Sex: Female
  Weight: 77.098 kg

DRUGS (6)
  1. YAZ [Suspect]
     Indication: CONTRACEPTION
     Dosage: UNK
     Dates: start: 20070414, end: 20090518
  2. OMEPRAZOLE [Concomitant]
     Indication: ABDOMINAL PAIN
     Dosage: 20 MG, QD
     Route: 048
     Dates: start: 20080101, end: 20090101
  3. SYNTHROID [Concomitant]
     Indication: HYPOTHYROIDISM
     Dosage: UNK
     Route: 048
     Dates: start: 20070101
  4. LEVOTHYROXINE SODIUM [Concomitant]
     Indication: HYPOTHYROIDISM
     Dosage: 125 MG, QD
     Route: 048
     Dates: start: 20080401, end: 20091101
  5. YAZ [Suspect]
     Indication: MENSTRUATION IRREGULAR
  6. PREVACID [Concomitant]
     Indication: ABDOMINAL PAIN
     Dosage: UNK
     Route: 048
     Dates: start: 20080401, end: 20091101

REACTIONS (15)
  - EMOTIONAL DISTRESS [None]
  - ANXIETY [None]
  - LIMB INJURY [None]
  - GAIT DISTURBANCE [None]
  - DYSPNOEA [None]
  - RESTLESS LEGS SYNDROME [None]
  - DEEP VEIN THROMBOSIS [None]
  - DIZZINESS [None]
  - VENOUS INSUFFICIENCY [None]
  - PAIN IN EXTREMITY [None]
  - FEAR [None]
  - INJURY [None]
  - PAIN [None]
  - GENERAL PHYSICAL HEALTH DETERIORATION [None]
  - HEADACHE [None]
